FAERS Safety Report 4608660-7 (Version None)
Quarter: 2005Q1

REPORT INFORMATION
  Report Type: 
  Country: None (occurrence: None)
  Receive Date: 20050315
  Receipt Date: 20050308
  Transmission Date: 20050727
  Serious: Yes (Death, Life-Threatening, Hospitalization, Other)
  Sender: FDA-Public Use
  Company Number: US-MERCK-0503USA01527

PATIENT
  Age: 51 Year
  Sex: Female
  Weight: 55 kg

DRUGS (13)
  1. FOSAMAX [Suspect]
     Indication: SPINAL OSTEOARTHRITIS
     Route: 048
     Dates: start: 20040709, end: 20040908
  2. FOSAMAX [Suspect]
     Route: 048
     Dates: start: 20040909, end: 20050203
  3. FOSAMAX [Suspect]
     Indication: BACK PAIN
     Route: 048
     Dates: start: 20040709, end: 20040908
  4. FOSAMAX [Suspect]
     Route: 048
     Dates: start: 20040909, end: 20050203
  5. EFFEXOR XR [Concomitant]
     Route: 065
  6. CELEBREX [Concomitant]
     Route: 048
  7. DIOVAN HCT [Concomitant]
     Route: 048
  8. ZELNORM [Concomitant]
     Route: 048
  9. FERROUS SULFATE [Concomitant]
     Route: 048
  10. FOLIC ACID [Concomitant]
     Route: 048
  11. TYLENOL (CAPLET) [Concomitant]
     Route: 048
  12. VITAMIN B COMPLEX [Concomitant]
     Route: 030
  13. CYANOCOBALAMIN [Concomitant]
     Route: 030

REACTIONS (7)
  - ARTHRALGIA [None]
  - DYSPEPSIA [None]
  - GASTRITIS HAEMORRHAGIC [None]
  - HAEMATOCRIT DECREASED [None]
  - HAEMOGLOBIN DECREASED [None]
  - MYALGIA [None]
  - WEIGHT DECREASED [None]
